FAERS Safety Report 3721679 (Version 2)
Quarter: 2016Q1

REPORT INFORMATION
  Report Type: Report from Study
  Country: JP (occurrence: JP)
  Receive Date: 20011005
  Receipt Date: 20160121
  Transmission Date: 20160526
  Serious: Yes (Hospitalization)
  Sender: FDA-Public Use
  Company Number: PHBS2000JP07079

PATIENT
  Age: 79 Year
  Sex: Male
  Weight: 50 kg

DRUGS (7)
  1. RIFADIN [Concomitant]
     Active Substance: RIFAMPIN
     Route: 065
     Dates: start: 19990507, end: 20000310
  2. DIAPHENYLSULFON [Concomitant]
     Route: 065
     Dates: start: 19991119, end: 19991223
  3. LAMPREN [Suspect]
     Active Substance: CLOFAZIMINE
     Indication: LEPROSY
     Dosage: 50 MG TO 300 MG/DAY
     Route: 048
     Dates: start: 19990507, end: 20000218
  4. VOLTAREN [Suspect]
     Active Substance: DICLOFENAC SODIUM
  5. LAMPREN [Suspect]
     Active Substance: CLOFAZIMINE
     Dosage: 50 TO 300 MG/DAY
     Route: 048
     Dates: start: 20001222, end: 20010301
  6. DIAPHENYLSULFON [Concomitant]
     Route: 065
     Dates: start: 19990710, end: 19990923
  7. DIAPHENYLSULFON [Concomitant]
     Route: 065
     Dates: start: 20000218, end: 20000330

REACTIONS (11)
  - Aspartate aminotransferase increased [Recovered/Resolved]
  - Chest pain [Recovered/Resolved]
  - Neuralgia [Unknown]
  - Pigmentation disorder [Recovered/Resolved]
  - Anaemia [Recovered/Resolved]
  - Blood urea increased [Recovered/Resolved]
  - Myocardial infarction [Recovered/Resolved]
  - Gastritis [Recovered/Resolved]
  - Peripheral vascular disorder [Recovered/Resolved]
  - White blood cell count increased [Recovered/Resolved]
  - Alanine aminotransferase increased [Recovered/Resolved]

NARRATIVE: CASE EVENT DATE: 19990218
